FAERS Safety Report 9999197 (Version 1)
Quarter: 2014Q1

REPORT INFORMATION
  Report Type: Spontaneous
  Country: US (occurrence: None)
  Receive Date: 20140311
  Receipt Date: 20140311
  Transmission Date: 20141002
  Serious: Yes (Disabling)
  Sender: FDA-Public Use
  Company Number: None

PATIENT
  Age: 36 Year
  Sex: Female
  Weight: 68.04 kg

DRUGS (1)
  1. MIRENA IUD [Suspect]

REACTIONS (9)
  - Pruritus [None]
  - Anal pruritus [None]
  - Depression [None]
  - Mood swings [None]
  - Middle ear effusion [None]
  - Insomnia [None]
  - Arthralgia [None]
  - Nausea [None]
  - Influenza like illness [None]
